FAERS Safety Report 7307351-1 (Version None)
Quarter: 2011Q1

REPORT INFORMATION
  Report Type: 
  Country: None (occurrence: None)
  Receive Date: 20110223
  Receipt Date: 20110215
  Transmission Date: 20110831
  Serious: Yes (Death)
  Sender: FDA-Public Use
  Company Number: US-PFIZER INC-2010125033

PATIENT
  Sex: Female
  Weight: 48 kg

DRUGS (4)
  1. BIOTIN [Concomitant]
     Indication: HAIR DISORDER
     Dosage: UNK
  2. TOVIAZ [Suspect]
     Indication: HYPERTONIC BLADDER
     Dosage: 8 MG, 1X/DAY
     Route: 048
     Dates: start: 20100928
  3. ACETYLSALICYLIC ACID [Concomitant]
     Dosage: UNK
  4. PREDNISONE [Concomitant]
     Dosage: UNK

REACTIONS (2)
  - DEATH [None]
  - DIARRHOEA [None]
